FAERS Safety Report 5876502-8 (Version None)
Quarter: 2008Q3

REPORT INFORMATION
  Report Type: 
  Country: None (occurrence: None)
  Receive Date: 20080910
  Receipt Date: 20080821
  Transmission Date: 20090109
  Serious: Yes (Disabling)
  Sender: FDA-Public Use
  Company Number: B0523555A

PATIENT
  Age: 51 Year
  Sex: Female

DRUGS (2)
  1. TYVERB [Suspect]
     Dosage: 1250MG PER DAY
     Route: 048
     Dates: start: 20080428
  2. XELODA [Suspect]
     Dosage: 1800MG CYCLIC
     Route: 048
     Dates: start: 20080428

REACTIONS (1)
  - MASS [None]
